FAERS Safety Report 24366921 (Version 1)
Quarter: 2024Q3

REPORT INFORMATION
  Report Type: Spontaneous
  Country: US (occurrence: None)
  Receive Date: 20240926
  Receipt Date: 20240926
  Transmission Date: 20241016
  Serious: No
  Sender: Public
  Company Number: None

PATIENT
  Age: 27 Year
  Sex: Female

DRUGS (1)
  1. DUPIXENT [Suspect]
     Active Substance: DUPILUMAB
     Indication: Dermatitis atopic
     Dosage: OTHER FREQUENCY : EVERY14DAYS;?
     Route: 058
     Dates: start: 20240207

REACTIONS (5)
  - Lacrimation increased [None]
  - Pruritus [None]
  - Formication [None]
  - Lacrimal disorder [None]
  - Conjunctivitis [None]

NARRATIVE: CASE EVENT DATE: 20240918
